FAERS Safety Report 7444478-8 (Version None)
Quarter: 2011Q2

REPORT INFORMATION
  Report Type: 
  Country: None (occurrence: None)
  Receive Date: 20110427
  Receipt Date: 20110427
  Transmission Date: 20111010
  Serious: Yes (Other)
  Sender: FDA-Public Use
  Company Number: None

PATIENT
  Sex: Female
  Weight: 68.4932 kg

DRUGS (1)
  1. HYDROCODONE BITARTRATE [Suspect]
     Indication: ANALGESIC THERAPY
     Dosage: 1 TAB 4 TIMES DAILY PRN PRIOR TO 2009
     Dates: start: 20090101

REACTIONS (6)
  - RASH PRURITIC [None]
  - PRODUCT SUBSTITUTION ISSUE [None]
  - VOMITING [None]
  - ACTIVITIES OF DAILY LIVING IMPAIRED [None]
  - URTICARIA [None]
  - NAUSEA [None]
